FAERS Safety Report 8812674 (Version 1)
Quarter: 2012Q4

REPORT INFORMATION
  Report Type: 
  Country: BR (occurrence: BR)
  Receive Date: 20120927
  Receipt Date: 20120927
  Transmission Date: 20130627
  Serious: Yes (Other)
  Sender: FDA-Public Use
  Company Number: PHHY2012BR083507

PATIENT
  Age: 49 Year
  Sex: Female
  Weight: 70 kg

DRUGS (6)
  1. SIMVASTATIN [Suspect]
     Dosage: 20 mg daily
     Route: 048
  2. ATENOLOL [Suspect]
     Route: 048
  3. METFORMIN [Suspect]
     Dosage: 500 mg, BID
     Route: 048
  4. GLIPIZIDE [Concomitant]
     Dosage: 5 mg, BID
  5. HYDROCHLOROTHIAZIDE [Concomitant]
     Dosage: 50 mg daily
  6. PIOGLITAZONE [Concomitant]
     Dosage: 15 mg, UNK

REACTIONS (3)
  - Hepatic steatosis [Unknown]
  - Microalbuminuria [Unknown]
  - Aortic calcification [Unknown]
